FAERS Safety Report 19885712 (Version 2)
Quarter: 2021Q3

REPORT INFORMATION
  Report Type: Other
  Country: JP (occurrence: JP)
  Receive Date: 20210927
  Receipt Date: 20210929
  Transmission Date: 20211014
  Serious: Yes (Other)
  Sender: FDA-Public Use
  Company Number: JP-ROCHE-2918913

PATIENT

DRUGS (3)
  1. RITUXIMAB. [Suspect]
     Active Substance: RITUXIMAB
     Indication: SENSITISATION
     Dosage: FOR 14 DAYS
     Route: 042
  2. MYCOPHENOLATE MOFETIL. [Suspect]
     Active Substance: MYCOPHENOLATE MOFETIL
     Indication: SENSITISATION
     Dosage: FOR 7 DAYS
     Route: 065
  3. TACROLIMUS. [Suspect]
     Active Substance: TACROLIMUS
     Indication: SENSITISATION
     Route: 065

REACTIONS (5)
  - Cytomegalovirus infection [Unknown]
  - Transplant rejection [Unknown]
  - Myelosuppression [Unknown]
  - Bile duct stenosis [Unknown]
  - Cholangitis [Unknown]
